FAERS Safety Report 7908360-1 (Version None)
Quarter: 2011Q4

REPORT INFORMATION
  Report Type: 
  Country: None (occurrence: None)
  Receive Date: 20111111
  Receipt Date: 20111101
  Transmission Date: 20120403
  Serious: Yes (Other)
  Sender: FDA-Public Use
  Company Number: CA-JNJFOC-20111103210

PATIENT
  Sex: Female
  Weight: 52.6 kg

DRUGS (12)
  1. REMICADE [Suspect]
     Indication: PSORIASIS
     Route: 042
     Dates: start: 20001007
  2. METHOTREXATE [Concomitant]
     Route: 058
  3. IBUPROFEN (ADVIL) [Concomitant]
     Route: 065
  4. REMICADE [Suspect]
     Indication: RHEUMATOID ARTHRITIS
     Route: 042
     Dates: start: 20001007
  5. LEUCOVORIN CALCIUM [Concomitant]
     Route: 065
  6. DESIPRAMIDE HCL [Concomitant]
     Route: 065
  7. VITAMIN D [Concomitant]
     Route: 065
  8. CALCIUM [Concomitant]
     Route: 065
  9. REMICADE [Suspect]
     Indication: UVEITIS
     Route: 042
     Dates: start: 20001007
  10. PREDNISONE TAB [Concomitant]
     Route: 048
  11. ATIVAN [Concomitant]
     Route: 065
  12. EVISTA [Concomitant]
     Route: 065

REACTIONS (3)
  - FALL [None]
  - SKIN ULCER [None]
  - ERYSIPELAS [None]
